FAERS Safety Report 10985510 (Version 1)
Quarter: 2015Q2

REPORT INFORMATION
  Report Type: Spontaneous
  Country: US (occurrence: None)
  Receive Date: 20150403
  Receipt Date: 20150403
  Transmission Date: 20150821
  Serious: Yes (Life-Threatening)
  Sender: FDA-Public Use
  Company Number: None

PATIENT
  Age: 66 Year
  Sex: Male
  Weight: 74 kg

DRUGS (1)
  1. TIGECYCLINE [Suspect]
     Active Substance: TIGECYCLINE
     Indication: PNEUMONIA LEGIONELLA
     Route: 042
     Dates: start: 20150306, end: 20150319

REACTIONS (3)
  - Jaundice cholestatic [None]
  - Hepatic failure [None]
  - Hepatitis cholestatic [None]

NARRATIVE: CASE EVENT DATE: 20150305
